FAERS Safety Report 4635638-X (Version None)
Quarter: 2005Q2

REPORT INFORMATION
  Report Type: 
  Country: None (occurrence: None)
  Receive Date: 20050413
  Receipt Date: 20050323
  Transmission Date: 20051028
  Serious: Yes (Death)
  Sender: FDA-Public Use
  Company Number: MK200504-0041-1

PATIENT
  Sex: Female

DRUGS (1)
  1. OPTIRAY 320 [Suspect]
     Indication: COMPUTERISED TOMOGRAM
     Dosage: ONE TIME, IV
     Route: 042
     Dates: start: 20050304, end: 20050304

REACTIONS (2)
  - MESENTERIC OCCLUSION [None]
  - POST PROCEDURAL COMPLICATION [None]
